FAERS Safety Report 11309074 (Version 3)
Quarter: 2015Q4

REPORT INFORMATION
  Report Type: Spontaneous
  Country: BR (occurrence: BR)
  Receive Date: 20150724
  Receipt Date: 20151016
  Transmission Date: 20160304
  Serious: Yes (Other)
  Sender: FDA-Public Use
  Company Number: BR-PFIZER INC-2015243043

PATIENT
  Age: 70 Year
  Sex: Female
  Weight: 77 kg

DRUGS (5)
  1. DONAREN RETARD [Concomitant]
     Active Substance: TRAZODONE HYDROCHLORIDE
     Dosage: UNK
  2. LABIRIN [Concomitant]
     Active Substance: BETAHISTINE
     Indication: LABYRINTHITIS
     Dosage: 2 TABLETS, PATIENT USES WHEN SHE HAS CRISIS
     Dates: start: 2011
  3. DRAMIN B6 [Concomitant]
     Indication: LABYRINTHITIS
     Dosage: 1 TABLET, UNK
  4. VERTIX [Concomitant]
     Indication: LABYRINTHITIS
     Dosage: USED WHEN SHE HAS CRISIS
  5. FRONTAL [Suspect]
     Active Substance: ALPRAZOLAM
     Indication: SLEEP DISORDER
     Dosage: 0.5 MG (1 TABLET) DAILY
     Route: 048
     Dates: start: 2011, end: 20110717

REACTIONS (3)
  - Memory impairment [Not Recovered/Not Resolved]
  - Dementia Alzheimer^s type [Not Recovered/Not Resolved]
  - Intentional product misuse [Unknown]

NARRATIVE: CASE EVENT DATE: 201506
